FAERS Safety Report 22266503 (Version 1)
Quarter: 2023Q2

REPORT INFORMATION
  Report Type: Spontaneous
  Country: GB (occurrence: GB)
  Receive Date: 20230428
  Receipt Date: 20230428
  Transmission Date: 20230722
  Serious: Yes (Other)
  Sender: FDA-Public Use
  Company Number: None

PATIENT
  Age: 37 Year
  Sex: Female
  Weight: 97 kg

DRUGS (9)
  1. TRIMETHOPRIM [Suspect]
     Active Substance: TRIMETHOPRIM
     Indication: Urinary tract infection
     Dosage: 400 MILLIGRAM DAILY;
     Route: 065
     Dates: start: 20230412
  2. CEPHALEXIN [Concomitant]
     Active Substance: CEPHALEXIN
     Indication: Product used for unknown indication
     Dosage: 1000 MILLIGRAM DAILY;
     Dates: start: 20230308, end: 20230406
  3. COCODAMOL [Concomitant]
     Active Substance: ACETAMINOPHEN\CODEINE PHOSPHATE
     Indication: Sciatica
     Dosage: ONE OR TWO TO BE TAKEN FOUR TIMES A DAY. 15MG/500MG
     Dates: start: 20230412
  4. DIORALYTE [Concomitant]
     Active Substance: CITRIC ACID MONOHYDRATE\DEXTROSE\POTASSIUM CATION\SODIUM CHLORIDE
     Indication: Diarrhoea
     Dosage: DISSOLVE SACHET IN 200ML OF WATER THREE TO FOUR TIMES A DAY.,
     Route: 048
     Dates: start: 20230306
  5. HYDROCORTISONE [Concomitant]
     Active Substance: HYDROCORTISONE
     Indication: Product used for unknown indication
     Dosage: 60 GRAM DAILY; APPLY THINLY AS DIRECTED
  6. LOPERAMIDE [Concomitant]
     Active Substance: LOPERAMIDE
     Indication: Diarrhoea
     Dosage: 2 STAT THEN 1 FTER EVERY BOWEL MOVEMENT . MAXIMUM 6-8/DAY.
     Dates: start: 20230306
  7. MEDROXYPROGESTERONE\MEDROXYPROGESTERONE ACETATE [Concomitant]
     Active Substance: MEDROXYPROGESTERONE\MEDROXYPROGESTERONE ACETATE
     Indication: Product used for unknown indication
     Dosage: 104 MG/0.65 ML
     Dates: start: 20230412
  8. SUMATRIPTAN [Concomitant]
     Active Substance: SUMATRIPTAN
     Indication: Migraine
     Dosage: 2 STAT THEN 1-2 AFTER 2 HRS IF NEEDED FOR MIGRANOUS HEADACHES ONLY . MAX. 4/ 24 HRS.
     Dates: start: 20230216
  9. DIBUCAINE HYDROCHLORIDE\PREDNISOLONE [Concomitant]
     Active Substance: DIBUCAINE HYDROCHLORIDE\PREDNISOLONE
     Indication: Haemorrhoids
     Dosage: 120 GRAM DAILY; APPLY SMALL AMOUNT TWICE DAILY AS DIR
     Dates: start: 20230123, end: 20230307

REACTIONS (1)
  - Swelling face [Not Recovered/Not Resolved]
